FAERS Safety Report 8137321-5 (Version None)
Quarter: 2012Q1

REPORT INFORMATION
  Report Type: 
  Country: None (occurrence: None)
  Receive Date: 20120210
  Receipt Date: 20120131
  Transmission Date: 20120608
  Serious: Yes (Other)
  Sender: FDA-Public Use
  Company Number: 2012AP000265

PATIENT
  Age: 43 Year
  Sex: Male

DRUGS (2)
  1. PAROXETINE HCL [Suspect]
     Indication: PRODUCT USED FOR UNKNOWN INDICATION
  2. BACLOFEN [Suspect]
     Indication: ALCOHOLISM
     Dosage: 30 MG;QD

REACTIONS (1)
  - MEMORY IMPAIRMENT [None]
